FAERS Safety Report 13905519 (Version 1)
Quarter: 2017Q3

REPORT INFORMATION
  Report Type: Report from Study
  Country: JP (occurrence: JP)
  Receive Date: 20170825
  Receipt Date: 20170825
  Transmission Date: 20171127
  Serious: Yes (Death, Other)
  Sender: FDA-Public Use
  Company Number: JP-ELI_LILLY_AND_COMPANY-JP201708008435

PATIENT
  Age: 83 Year
  Sex: Male

DRUGS (3)
  1. VITAMIN B12 [Concomitant]
     Active Substance: CYANOCOBALAMIN
     Dosage: 1 G, OTHER
     Route: 030
  2. PEMETREXED. [Suspect]
     Active Substance: PEMETREXED
     Indication: LUNG ADENOCARCINOMA STAGE III
     Route: 042
  3. FOLIC ACID. [Concomitant]
     Active Substance: FOLIC ACID
     Dosage: 0.5 G, DAILY
     Route: 048

REACTIONS (10)
  - Aspartate aminotransferase decreased [Unknown]
  - Blood creatinine increased [Unknown]
  - Haemoglobin decreased [Unknown]
  - Febrile neutropenia [Unknown]
  - Alanine aminotransferase decreased [Unknown]
  - Thrombocytopenia [Unknown]
  - Leukopenia [Unknown]
  - Acute respiratory distress syndrome [Fatal]
  - Interstitial lung disease [Fatal]
  - Neutropenia [Unknown]
